FAERS Safety Report 24142341 (Version 1)
Quarter: 2024Q3

REPORT INFORMATION
  Report Type: Report from Study
  Country: US (occurrence: None)
  Receive Date: 20240726
  Receipt Date: 20240726
  Transmission Date: 20241017
  Serious: Yes (Other)
  Sender: ASTRAZENECA
  Company Number: 2024A168035

PATIENT
  Age: 26844 Day
  Sex: Female

DRUGS (4)
  1. TAGRISSO [Suspect]
     Active Substance: OSIMERTINIB
     Indication: Non-small cell lung cancer
     Route: 048
     Dates: start: 20240717, end: 20240720
  2. CALCIUM [Concomitant]
     Active Substance: CALCIUM
  3. VITAMIN B COMPLEX [Concomitant]
     Active Substance: CYANOCOBALAMIN\DEXPANTHENOL\NIACINAMIDE\PYRIDOXINE HYDROCHLORIDE\RIBOFLAVIN 5^-PHOSPHATE SODIUM\THIA
  4. OCUVITE [Concomitant]
     Active Substance: VITAMINS

REACTIONS (5)
  - Drug hypersensitivity [Recovering/Resolving]
  - Angioedema [Unknown]
  - Aphonia [Unknown]
  - Dysphonia [Unknown]
  - Urticaria [Unknown]

NARRATIVE: CASE EVENT DATE: 20240720
